FAERS Safety Report 5340135-2 (Version None)
Quarter: 2007Q2

REPORT INFORMATION
  Report Type: 
  Country: None (occurrence: None)
  Receive Date: 20070531
  Receipt Date: 20070522
  Transmission Date: 20071010
  Serious: No
  Sender: FDA-Public Use
  Company Number: US-BAXTER-2006BH000267

PATIENT
  Age: 51 Year

DRUGS (1)
  1. POLYGAM S/D [Suspect]
     Indication: DRUG USE FOR UNKNOWN INDICATION
     Dosage: DOSE UNIT:UNKNOWN
     Route: 042
     Dates: start: 19960709, end: 19960710

REACTIONS (1)
  - DEEP VEIN THROMBOSIS [None]
